FAERS Safety Report 10915508 (Version 1)
Quarter: 2015Q1

REPORT INFORMATION
  Report Type: Spontaneous
  Country: US (occurrence: None)
  Receive Date: 20150311
  Receipt Date: 20150311
  Transmission Date: 20150721
  Serious: Yes (Death, Hospitalization)
  Sender: FDA-Public Use
  Company Number: None

PATIENT
  Age: 55 Year
  Sex: Female
  Weight: 93.3 kg

DRUGS (24)
  1. LORATIDINE [Concomitant]
     Active Substance: LORATADINE
  2. ONDANSETRON [Concomitant]
     Active Substance: ONDANSETRON
  3. PANTOPRAZOLE [Concomitant]
     Active Substance: PANTOPRAZOLE SODIUM
  4. IDARUBICIN [Suspect]
     Active Substance: IDARUBICIN
     Dates: start: 20150220
  5. BIOTENE ORAL RINSE [Concomitant]
  6. PANTROPRAZOLE [Concomitant]
  7. MORPHINE SULFATE. [Concomitant]
     Active Substance: MORPHINE SULFATE
  8. MUCOSITIS MIXTURE [Concomitant]
  9. NYSTATIN POWDER [Concomitant]
  10. VANCOMYCIN [Concomitant]
     Active Substance: VANCOMYCIN
  11. VORICONAZOLE. [Concomitant]
     Active Substance: VORICONAZOLE
  12. TRAMADOLE [Concomitant]
  13. CEFEPINE [Concomitant]
  14. ACETAMINOPHEN. [Concomitant]
     Active Substance: ACETAMINOPHEN
  15. ALLOPURINOL. [Concomitant]
     Active Substance: ALLOPURINOL
  16. AZTREONAM. [Concomitant]
     Active Substance: AZTREONAM
  17. CALAMINE LOTION [Concomitant]
     Active Substance: CALAMINE LOTION
  18. LORAZEPAM. [Concomitant]
     Active Substance: LORAZEPAM
  19. AZITHROMYCIN [Concomitant]
     Active Substance: AZITHROMYCIN ANHYDROUS
  20. FLAGYL [Concomitant]
     Active Substance: METRONIDAZOLE\METRONIDAZOLE HYDROCHLORIDE
  21. SCOPOLAMINE [Concomitant]
     Active Substance: SCOPOLAMINE
  22. CYTARABINE. [Suspect]
     Active Substance: CYTARABINE
     Dates: start: 20150221
  23. ACYCLOVIR. [Concomitant]
     Active Substance: ACYCLOVIR
  24. RANITIDINE [Concomitant]
     Active Substance: RANITIDINE\RANITIDINE HYDROCHLORIDE

REACTIONS (14)
  - Nausea [None]
  - Septic shock [None]
  - Oral disorder [None]
  - Cardio-respiratory arrest [None]
  - Pyrexia [None]
  - Helicobacter infection [None]
  - Hypotension [None]
  - Dyspepsia [None]
  - Swelling [None]
  - Renal impairment [None]
  - Tachycardia [None]
  - Abdominal distension [None]
  - Thrombocytopenia [None]
  - Rash [None]

NARRATIVE: CASE EVENT DATE: 20150218
